FAERS Safety Report 21060816 (Version 1)
Quarter: 2022Q3

REPORT INFORMATION
  Report Type: Spontaneous
  Country: DE (occurrence: DE)
  Receive Date: 20220709
  Receipt Date: 20220709
  Transmission Date: 20221027
  Serious: Yes (Other)
  Sender: FDA-Public Use
  Company Number: None

PATIENT
  Age: 74 Year
  Sex: Female
  Weight: 56 kg

DRUGS (2)
  1. PANTOPRAZOLE [Suspect]
     Active Substance: PANTOPRAZOLE
     Indication: Product used for unknown indication
     Dosage: 1,  STRENGTH  :20MG, DURATION :10 DAYS
     Route: 065
     Dates: start: 20220530, end: 20220609
  2. CORTISONE [Concomitant]
     Active Substance: CORTISONE
     Indication: Organising pneumonia
     Dosage: CORTISONE 20

REACTIONS (1)
  - Syncope [Recovered/Resolved]

NARRATIVE: CASE EVENT DATE: 20220607
